FAERS Safety Report 9165865 (Version 3)
Quarter: 2014Q4

REPORT INFORMATION
  Report Type: Report from Study
  Country: CA (occurrence: CA)
  Receive Date: 20130315
  Receipt Date: 20141009
  Transmission Date: 20150529
  Serious: Yes (Life-Threatening, Other)
  Sender: FDA-Public Use
  Company Number: CA-ROCHE-1202256

PATIENT
  Sex: Male
  Weight: 73 kg

DRUGS (11)
  1. LAMIVUDINE. [Concomitant]
     Active Substance: LAMIVUDINE
  2. RITUXAN [Suspect]
     Active Substance: RITUXIMAB
     Indication: OFF LABEL USE
     Dosage: DATE OF LAST INFUSION : 03/JUN/2013.
     Route: 042
     Dates: start: 20130513
  3. GABAPENTIN. [Concomitant]
     Active Substance: GABAPENTIN
  4. GLIBENCLAMIDE [Concomitant]
     Active Substance: GLYBURIDE
     Route: 065
  5. PREDNISONE. [Suspect]
     Active Substance: PREDNISONE
     Indication: PRODUCT USED FOR UNKNOWN INDICATION
     Route: 065
  6. DIPHENHYDRAMINE HCL [Concomitant]
     Active Substance: DIPHENHYDRAMINE HYDROCHLORIDE
     Route: 048
     Dates: start: 20130513
  7. METHADONE [Concomitant]
     Active Substance: METHADONE HYDROCHLORIDE
     Dosage: DISCONTINUED DUE TO INTERACTIONS WITH METHADONE
     Route: 065
     Dates: end: 201310
  8. RITUXAN [Suspect]
     Active Substance: RITUXIMAB
     Indication: GRAFT VERSUS HOST DISEASE
     Route: 042
     Dates: start: 20120215, end: 20120309
  9. CYCLOSPORINE. [Concomitant]
     Active Substance: CYCLOSPORINE
     Route: 065
     Dates: end: 201310
  10. PARIET [Concomitant]
     Active Substance: RABEPRAZOLE SODIUM
     Route: 065
  11. OXYBUTYNIN [Concomitant]
     Active Substance: OXYBUTYNIN

REACTIONS (15)
  - Atrial fibrillation [Unknown]
  - Body height decreased [Unknown]
  - Hepatic function abnormal [Recovered/Resolved]
  - Back pain [Unknown]
  - Fall [Unknown]
  - Decreased appetite [Unknown]
  - Insomnia [Not Recovered/Not Resolved]
  - Hypoaesthesia [Not Recovered/Not Resolved]
  - Dacryostenosis acquired [Unknown]
  - Fatigue [Unknown]
  - Spinal fracture [Unknown]
  - Weight decreased [Unknown]
  - Diabetes mellitus [Recovering/Resolving]
  - Scleroderma [Not Recovered/Not Resolved]
  - Off label use [Unknown]

NARRATIVE: CASE EVENT DATE: 2013
